FAERS Safety Report 19583845 (Version 1)
Quarter: 2021Q3

REPORT INFORMATION
  Report Type: Report from Study
  Country: CA (occurrence: CA)
  Receive Date: 20210720
  Receipt Date: 20210720
  Transmission Date: 20211014
  Serious: Yes (Other)
  Sender: FDA-Public Use
  Company Number: NVSC2021CA159137

PATIENT

DRUGS (6)
  1. BLINDED NO TREATMENT RECEIVED [Suspect]
     Active Substance: INVESTIGATIONAL PRODUCT
     Indication: NON-SMALL CELL LUNG CANCER
     Dosage: NO TREATMENT
     Route: 048
  2. INC280 [Suspect]
     Active Substance: CAPMATINIB
     Indication: NON-SMALL CELL LUNG CANCER
     Route: 048
  3. PLACEBO [Suspect]
     Active Substance: UNSPECIFIED INGREDIENT
     Indication: NON-SMALL CELL LUNG CANCER
     Dosage: NO TREATMENT
     Route: 048
  4. BLINDED PDR001 [Suspect]
     Active Substance: SPARTALIZUMAB
     Indication: NON-SMALL CELL LUNG CANCER
     Dosage: NO TREATMENT
     Route: 048
  5. PDR001 [Suspect]
     Active Substance: SPARTALIZUMAB
     Indication: NON-SMALL CELL LUNG CANCER
     Route: 042
  6. BLINDED INC280 [Suspect]
     Active Substance: CAPMATINIB
     Indication: NON-SMALL CELL LUNG CANCER
     Dosage: NO TREATMENT
     Route: 048

REACTIONS (2)
  - Hepatitis [Unknown]
  - Oedema peripheral [Unknown]
